FAERS Safety Report 25849032 (Version 2)
Quarter: 2025Q4

REPORT INFORMATION
  Report Type: Report from Study
  Country: US (occurrence: US)
  Receive Date: 20250925
  Receipt Date: 20251008
  Transmission Date: 20260117
  Serious: Yes (Hospitalization)
  Sender: MALLINCKRODT
  Company Number: US-MALLINCKRODT-MNK202505908

PATIENT
  Age: 15 Month
  Sex: Male
  Weight: 15 kg

DRUGS (1)
  1. CORTICOTROPIN [Suspect]
     Active Substance: CORTICOTROPIN
     Indication: Infantile spasms
     Route: 030
     Dates: start: 20250911

REACTIONS (8)
  - Blood pressure increased [Unknown]
  - Lip discolouration [Unknown]
  - Skin discolouration [Unknown]
  - Flushing [Unknown]
  - Injection site bruising [Unknown]
  - Injection site erythema [Unknown]
  - Irritability [Unknown]
  - Increased appetite [Unknown]

NARRATIVE: CASE EVENT DATE: 20250901
